FAERS Safety Report 4334487-X (Version None)
Quarter: 2004Q2

REPORT INFORMATION
  Report Type: 
  Country: None (occurrence: None)
  Receive Date: 20040407
  Receipt Date: 20040325
  Transmission Date: 20050107
  Serious: Yes (Hospitalization)
  Sender: FDA-Public Use
  Company Number: BR-GLAXOSMITHKLINE-A0505617A

PATIENT
  Age: 1 Year
  Sex: Male
  Weight: 12 kg

DRUGS (2)
  1. ZINNAT [Suspect]
     Indication: DRUG USE FOR UNKNOWN INDICATION
     Dosage: 250MG SINGLE DOSE
     Route: 048
  2. BACTRIM [Concomitant]

REACTIONS (3)
  - CONVULSION [None]
  - PYREXIA [None]
  - TREMOR [None]
